FAERS Safety Report 5959362-6 (Version None)
Quarter: 2008Q4

REPORT INFORMATION
  Report Type: 
  Country: None (occurrence: None)
  Receive Date: 20081120
  Receipt Date: 20081112
  Transmission Date: 20090506
  Serious: Yes (Other)
  Sender: FDA-Public Use
  Company Number: US-ASTRAZENECA-2005UW17808

PATIENT
  Age: 66 Year
  Sex: Female
  Weight: 62.1 kg

DRUGS (3)
  1. ATENOLOL [Suspect]
     Route: 048
  2. ZESTORETIC [Suspect]
     Indication: HYPERTENSION
     Dosage: 10/25 MG
     Route: 048
     Dates: end: 20051122
  3. SULFA [Concomitant]

REACTIONS (8)
  - DEAFNESS [None]
  - HEADACHE [None]
  - HEART RATE IRREGULAR [None]
  - NERVOUS SYSTEM DISORDER [None]
  - PAIN [None]
  - TINNITUS [None]
  - TRANSIENT ISCHAEMIC ATTACK [None]
  - VISUAL IMPAIRMENT [None]
